FAERS Safety Report 8923985 (Version 2)
Quarter: 2013Q2

REPORT INFORMATION
  Report Type: Spontaneous
  Country: DE (occurrence: EG)
  Receive Date: 20121126
  Receipt Date: 20130605
  Transmission Date: 20140414
  Serious: Yes (Hospitalization)
  Sender: FDA-Public Use
  Company Number: DE-ABBOTT-12P-062-1009277-00

PATIENT
  Sex: Female

DRUGS (2)
  1. HUMIRA [Suspect]
     Indication: CROHN^S DISEASE
     Route: 058
     Dates: start: 20100625, end: 2012
  2. HUMIRA [Suspect]
     Route: 058
     Dates: start: 20130531

REACTIONS (2)
  - Gastrointestinal stoma complication [Recovered/Resolved]
  - Nosocomial infection [Recovered/Resolved]
